FAERS Safety Report 24329160 (Version 1)
Quarter: 2024Q3

REPORT INFORMATION
  Report Type: Spontaneous
  Country: CN (occurrence: CN)
  Receive Date: 20240917
  Receipt Date: 20240917
  Transmission Date: 20241017
  Serious: Yes (Other)
  Sender: MYLAN
  Company Number: CN-MYLANLABS-2024M1083313

PATIENT

DRUGS (2)
  1. CELECOXIB [Suspect]
     Active Substance: CELECOXIB
     Indication: Synovitis
     Dosage: 0.2 GRAM, QD (AFTER BREAKFAST FOR 3 WEEKS)
     Route: 048
  2. CELECOXIB [Suspect]
     Active Substance: CELECOXIB
     Indication: Spleen disorder

REACTIONS (2)
  - Synovitis [Unknown]
  - Condition aggravated [Unknown]
